FAERS Safety Report 4467789-7 (Version None)
Quarter: 2004Q4

REPORT INFORMATION
  Report Type: 
  Country: None (occurrence: None)
  Receive Date: 20041004
  Receipt Date: 20040921
  Transmission Date: 20050328
  Serious: Yes (Other)
  Sender: FDA-Public Use
  Company Number: T04-JPN-04694-01

PATIENT
  Age: 86 Year
  Sex: Female

DRUGS (6)
  1. MEMANTINE HCL [Suspect]
     Indication: DEMENTIA ALZHEIMER'S TYPE
     Dosage: 20 MG QD PO
     Route: 048
     Dates: start: 20040330, end: 20040812
  2. FURSULTIAMINE [Concomitant]
  3. LISINOPRIL [Concomitant]
  4. LORMETAZEPAM [Concomitant]
  5. NIFEDIPINE [Concomitant]
  6. TIAPRIDE HYDROCHLORIDE [Concomitant]

REACTIONS (3)
  - CIRCULATORY COLLAPSE [None]
  - LACUNAR INFARCTION [None]
  - MONOPLEGIA [None]
